FAERS Safety Report 4429065-8 (Version None)
Quarter: 2004Q3

REPORT INFORMATION
  Report Type: 
  Country: None (occurrence: None)
  Receive Date: 20040818
  Receipt Date: 20040616
  Transmission Date: 20050211
  Serious: Yes (Other)
  Sender: FDA-Public Use
  Company Number: US-MERCK-0406USA01715

PATIENT
  Age: 68 Year
  Sex: Female

DRUGS (3)
  1. TYLENOL [Concomitant]
     Route: 048
  2. PRAVACHOL [Concomitant]
     Route: 065
  3. VIOXX [Suspect]
     Indication: PAIN
     Route: 048
     Dates: start: 19990101, end: 20020101

REACTIONS (39)
  - ABDOMINAL PAIN [None]
  - ADRENAL ADENOMA [None]
  - ANGINA PECTORIS [None]
  - ARTHRITIS [None]
  - BLOOD CHOLESTEROL INCREASED [None]
  - BRONCHITIS [None]
  - CARDIAC MURMUR [None]
  - CATARACT [None]
  - CELLULITIS [None]
  - CHEST PAIN [None]
  - CHRONIC FATIGUE SYNDROME [None]
  - CONSTIPATION [None]
  - CYSTITIS [None]
  - CYSTITIS GLANDULARIS [None]
  - DIZZINESS [None]
  - DYSPEPSIA [None]
  - DYSPNOEA [None]
  - DYSPNOEA PAROXYSMAL NOCTURNAL [None]
  - EAR INFECTION [None]
  - ELECTROCARDIOGRAM ABNORMAL [None]
  - EMOTIONAL DISTRESS [None]
  - GASTROINTESTINAL ULCER [None]
  - GASTROOESOPHAGEAL REFLUX DISEASE [None]
  - HAEMATURIA [None]
  - HEADACHE [None]
  - HYPERCHOLESTEROLAEMIA [None]
  - INCREASED TENDENCY TO BRUISE [None]
  - MITRAL VALVE INCOMPETENCE [None]
  - NAUSEA [None]
  - OSTEOPOROSIS [None]
  - PALPITATIONS [None]
  - PAROTID GLAND ENLARGEMENT [None]
  - PEPTIC ULCER [None]
  - RHINITIS ALLERGIC [None]
  - STRESS INCONTINENCE [None]
  - THYROID NEOPLASM [None]
  - TOOTH ABSCESS [None]
  - URETHRAL CARUNCLE [None]
  - URINARY TRACT INFECTION [None]
